FAERS Safety Report 16066693 (Version 1)
Quarter: 2019Q1

REPORT INFORMATION
  Report Type: Spontaneous
  Country: US (occurrence: US)
  Receive Date: 20190313
  Receipt Date: 20190313
  Transmission Date: 20190418
  Serious: Yes (Hospitalization)
  Sender: FDA-Public Use
  Company Number: US-KYOWAKIRIN-2019BKK003824

PATIENT

DRUGS (1)
  1. CRYSVITA [Suspect]
     Active Substance: BUROSUMAB-TWZA
     Indication: HYPOPHOSPHATAEMIA
     Dosage: 30 MG, 1X/2 WEEKS
     Route: 030
     Dates: start: 20180524

REACTIONS (1)
  - Acute disseminated encephalomyelitis [Not Recovered/Not Resolved]

NARRATIVE: CASE EVENT DATE: 20190306
